FAERS Safety Report 9899520 (Version 2)
Quarter: 2014Q3

REPORT INFORMATION
  Report Type: Spontaneous
  Country: US (occurrence: US)
  Receive Date: 20140214
  Receipt Date: 20140813
  Transmission Date: 20150326
  Serious: Yes (Hospitalization, Other)
  Sender: FDA-Public Use
  Company Number: US-009507513-1402USA006657

PATIENT
  Sex: Female

DRUGS (1)
  1. NUVARING [Suspect]
     Active Substance: ETHINYL ESTRADIOL\ETONOGESTREL
     Indication: PRODUCT USED FOR UNKNOWN INDICATION
     Route: 067

REACTIONS (10)
  - Loss of consciousness [Unknown]
  - Syncope [Unknown]
  - Tooth fracture [Unknown]
  - Pulmonary embolism [Unknown]
  - Depression [Unknown]
  - Lip disorder [Unknown]
  - Fall [Unknown]
  - Granuloma [Unknown]
  - Genital herpes simplex [Unknown]
  - Pulmonary mass [Unknown]

NARRATIVE: CASE EVENT DATE: 201309
